FAERS Safety Report 7328721-1 (Version None)
Quarter: 2011Q1

REPORT INFORMATION
  Report Type: 
  Country: None (occurrence: None)
  Receive Date: 20110303
  Receipt Date: 20110301
  Transmission Date: 20110831
  Serious: Yes (Other)
  Sender: FDA-Public Use
  Company Number: IT-PFIZER INC-2011045131

PATIENT
  Sex: Female

DRUGS (1)
  1. TORVAST [Suspect]
     Dosage: UNK

REACTIONS (1)
  - VASCULITIS [None]
